FAERS Safety Report 24275872 (Version 3)
Quarter: 2024Q4

REPORT INFORMATION
  Report Type: Report from Study
  Country: US (occurrence: US)
  Receive Date: 20240903
  Receipt Date: 20241112
  Transmission Date: 20250115
  Serious: No
  Sender: AMGEN
  Company Number: US-AMGEN-USASP2024174576

PATIENT
  Age: 85 Year
  Sex: Female
  Weight: 66.213 kg

DRUGS (22)
  1. TEPEZZA [Suspect]
     Active Substance: TEPROTUMUMAB-TRBW
     Indication: Toxic goitre
     Dosage: 676 MILLIGRAM, FIRST DOSE
     Route: 042
     Dates: start: 20240816
  2. TEPEZZA [Suspect]
     Active Substance: TEPROTUMUMAB-TRBW
     Indication: Endocrine ophthalmopathy
     Dosage: 676 MILLIGRAM, Q3WK
     Route: 042
     Dates: start: 2024
  3. TEPEZZA [Suspect]
     Active Substance: TEPROTUMUMAB-TRBW
     Dosage: UNK, Q3WK
     Route: 042
     Dates: start: 2024
  4. TEPEZZA [Suspect]
     Active Substance: TEPROTUMUMAB-TRBW
     Dosage: 20 MILLIGRAM/KILOGRAM, RECENT INFUSION
     Route: 040
     Dates: start: 20241107
  5. Sterilised water for injection [Concomitant]
     Dosage: UNK
  6. SODIUM CHLORIDE [Concomitant]
     Active Substance: SODIUM CHLORIDE
     Dosage: UNK
  7. SODIUM CHLORIDE [Concomitant]
     Active Substance: SODIUM CHLORIDE
     Dosage: UNK 0.9%
  8. MELATONIN [Concomitant]
     Active Substance: MELATONIN
     Dosage: 5 MILLIGRAM
  9. ACETAMINOPHEN [Concomitant]
     Active Substance: ACETAMINOPHEN
     Dosage: 325 MILLIGRAM
  10. MINERALS\VITAMINS [Concomitant]
     Active Substance: MINERALS\VITAMINS
     Dosage: UNK 20MG-90MG
  11. LEVOTHYROXINE SODIUM [Concomitant]
     Active Substance: LEVOTHYROXINE SODIUM
     Dosage: 25 MICROGRAM
  12. CALCIUM [Concomitant]
     Active Substance: CALCIUM
     Dosage: 600 MILLIGRAM
  13. VITAMIN C [Concomitant]
     Active Substance: ASCORBIC ACID
     Dosage: 500 MILLIGRAM
  14. BIOTIN [Concomitant]
     Active Substance: BIOTIN
     Dosage: 10 MILLIGRAM
  15. PROBIOTICS NOS [Concomitant]
     Active Substance: PROBIOTICS NOS
     Dosage: UNK PROBIOTIC SB CELL CAPSULE
  16. VITAMIN D [Concomitant]
     Active Substance: VITAMIN D NOS
     Dosage: UNK 400 10 MCG
  17. VITAMIN D [Concomitant]
     Active Substance: VITAMIN D NOS
     Dosage: UNK 1200-144MG
  18. FISH OIL [Concomitant]
     Active Substance: FISH OIL
     Dosage: UNK, (1200-144 MG)
  19. VITAMINS [Concomitant]
     Active Substance: VITAMINS
     Dosage: UNK
  20. Allergy Relief [Concomitant]
     Dosage: 10 MILLIGRAM
  21. FIBER THERAPY (CALCIUM POLYCARBOPHIL) [Concomitant]
     Active Substance: CALCIUM POLYCARBOPHIL
     Dosage: 625 MILLIGRAM
  22. LISINOPRIL [Concomitant]
     Active Substance: LISINOPRIL
     Dosage: 10 MILLIGRAM

REACTIONS (3)
  - Faeces soft [Unknown]
  - Nail bed disorder [Unknown]
  - Ear disorder [Unknown]

NARRATIVE: CASE EVENT DATE: 20240101
